FAERS Safety Report 4465482-8 (Version None)
Quarter: 2004Q3

REPORT INFORMATION
  Report Type: 
  Country: None (occurrence: None)
  Receive Date: 20040930
  Receipt Date: 20040915
  Transmission Date: 20050211
  Serious: Yes (Death, Life-Threatening, Hospitalization, Other)
  Sender: FDA-Public Use
  Company Number: ATO-04-0820

PATIENT
  Age: 38 Year
  Sex: Male

DRUGS (9)
  1. TRISENOX [Suspect]
     Indication: TESTICULAR SEMINOMA (PURE) STAGE III
     Dosage: 20.3 MG (0.25 MG/KG, DAYS 1-5)
     Route: 042
     Dates: start: 20040628, end: 20040703
  2. DIPHENOXYLATE W/ATROPINE SULFATE (ATROPINE SULFATE, DIPHENOXYLATE) [Concomitant]
  3. ALBUTEROL [Concomitant]
  4. FLUTICASONE PROPIONATE/SALMETEROL (FLUTICASONE PROPIONATE, SALBUTEROL) [Concomitant]
  5. AMITRIPTYLINE HCL [Concomitant]
  6. MAGNESIUM TRIOXIDE (MAGNESIUM) [Concomitant]
  7. VITAMIN [Concomitant]
  8. ESSIAC TEA [Concomitant]
  9. GINSENG (GINSENG) [Concomitant]

REACTIONS (10)
  - DIARRHOEA [None]
  - DYSPNOEA [None]
  - FATIGUE [None]
  - HAEMOGLOBIN DECREASED [None]
  - HYPOXIA [None]
  - LUNG INFILTRATION [None]
  - PNEUMONITIS [None]
  - RENAL FAILURE ACUTE [None]
  - SINUS TACHYCARDIA [None]
  - WHITE BLOOD CELL COUNT DECREASED [None]
